FAERS Safety Report 25553989 (Version 1)
Quarter: 2025Q3

REPORT INFORMATION
  Report Type: Spontaneous
  Country: EU (occurrence: EU)
  Receive Date: 20250715
  Receipt Date: 20250715
  Transmission Date: 20251021
  Serious: Yes (Hospitalization, Other)
  Sender: SOLARIS PHARMA CORPORATION
  Company Number: EU-SPC-000661

PATIENT
  Sex: Female

DRUGS (2)
  1. METRONIDAZOLE [Suspect]
     Active Substance: METRONIDAZOLE
     Indication: Antibiotic therapy
     Route: 065
  2. AMOXICILLIN [Concomitant]
     Active Substance: AMOXICILLIN
     Indication: Antibiotic therapy
     Route: 065

REACTIONS (1)
  - Neurotoxicity [Recovered/Resolved with Sequelae]
